FAERS Safety Report 8243731-8 (Version None)
Quarter: 2012Q1

REPORT INFORMATION
  Report Type: 
  Country: None (occurrence: None)
  Receive Date: 20120329
  Receipt Date: 20110506
  Transmission Date: 20120608
  Serious: No
  Sender: FDA-Public Use
  Company Number: US-MYLANLABS-2011S1009634

PATIENT
  Age: 72 Year
  Sex: Male

DRUGS (1)
  1. EMSAM [Suspect]
     Indication: DEPRESSION
     Dosage: CHANGED QD
     Route: 062
     Dates: start: 20110501

REACTIONS (5)
  - DRUG INEFFECTIVE [None]
  - DEPRESSION [None]
  - APPLICATION SITE ERYTHEMA [None]
  - VISION BLURRED [None]
  - NECK PAIN [None]
